FAERS Safety Report 25251013 (Version 1)
Quarter: 2025Q2

REPORT INFORMATION
  Report Type: Spontaneous
  Country: FR (occurrence: FR)
  Receive Date: 20250429
  Receipt Date: 20250429
  Transmission Date: 20250716
  Serious: Yes (Hospitalization)
  Sender: BAYER HEALTHCARE PHARMACEUTICALS INC.
  Company Number: None

PATIENT
  Age: 66 Year
  Sex: Male

DRUGS (12)
  1. CIPROFLOXACIN [Interacting]
     Active Substance: CIPROFLOXACIN
     Indication: Product used for unknown indication
     Dosage: 500 MG, BID
     Route: 048
     Dates: start: 20250313, end: 20250323
  2. FLUINDIONE [Interacting]
     Active Substance: FLUINDIONE
     Indication: Aortic valve replacement
     Route: 048
     Dates: start: 2012
  3. ZOPICLONE [Concomitant]
     Active Substance: ZOPICLONE
     Indication: Sleep disorder
     Route: 048
  4. LEVOTHYROXINE [Concomitant]
     Active Substance: LEVOTHYROXINE
     Indication: Hypothyroidism
     Route: 048
  5. FELODIPINE\METOPROLOL SUCCINATE [Concomitant]
     Active Substance: FELODIPINE\METOPROLOL SUCCINATE
     Indication: Hypertension
     Route: 048
  6. HYDROCHLOROTHIAZIDE\IRBESARTAN [Concomitant]
     Active Substance: HYDROCHLOROTHIAZIDE\IRBESARTAN
     Indication: Hypertension
     Route: 048
  7. ASPIRIN [Concomitant]
     Active Substance: ASPIRIN
     Indication: Prophylaxis
     Route: 048
  8. ATORVASTATIN [Concomitant]
     Active Substance: ATORVASTATIN
     Indication: Prophylaxis
     Route: 048
  9. BICALUTAMIDE [Concomitant]
     Active Substance: BICALUTAMIDE
     Indication: Prostate cancer
     Route: 048
  10. ESOMEPRAZOLE [Concomitant]
     Active Substance: ESOMEPRAZOLE
     Indication: Prophylaxis against gastrointestinal ulcer
     Route: 048
  11. EFFERALGAN [Concomitant]
     Active Substance: ACETAMINOPHEN
     Indication: Pain
     Route: 048
  12. ALFUZOSIN HYDROCHLORIDE [Concomitant]
     Active Substance: ALFUZOSIN HYDROCHLORIDE
     Indication: Dysuria
     Route: 048

REACTIONS (5)
  - Hepatic cytolysis [Recovering/Resolving]
  - Cholestasis [Recovered/Resolved]
  - Anaemia [Recovering/Resolving]
  - International normalised ratio increased [Recovered/Resolved]
  - Labelled drug-drug interaction issue [Recovered/Resolved]

NARRATIVE: CASE EVENT DATE: 20250326
